FAERS Safety Report 22637251 (Version 1)
Quarter: 2023Q2

REPORT INFORMATION
  Report Type: Spontaneous
  Country: US (occurrence: None)
  Receive Date: 20230622
  Receipt Date: 20230622
  Transmission Date: 20230721
  Serious: Yes (Hospitalization)
  Sender: FDA-Public Use
  Company Number: None

PATIENT
  Sex: Female

DRUGS (1)
  1. DEFERASIROX [Suspect]
     Active Substance: DEFERASIROX
     Dosage: OTHER QUANTITY : 1080;?FREQUENCY : DAILY;?

REACTIONS (3)
  - Urinary tract infection [None]
  - Diarrhoea [None]
  - Therapy interrupted [None]
